FAERS Safety Report 16954875 (Version 2)
Quarter: 2019Q4

REPORT INFORMATION
  Report Type: Spontaneous
  Country: JP (occurrence: JP)
  Receive Date: 20191024
  Receipt Date: 20191231
  Transmission Date: 20200122
  Serious: Yes (Hospitalization, Other)
  Sender: FDA-Public Use
  Company Number: JP-ACCORD-158538

PATIENT
  Age: 65 Year
  Sex: Female

DRUGS (2)
  1. PREDNISOLONE. [Suspect]
     Active Substance: PREDNISOLONE
     Indication: RHEUMATOID ARTHRITIS
     Dosage: HIGH-DOSE PREDNISONE WAS STARTED 2 YEARS AGO
  2. METHOTREXATE. [Suspect]
     Active Substance: METHOTREXATE
     Indication: RHEUMATOID ARTHRITIS
     Dosage: LATEST DOSE 8MG/WEEK OF

REACTIONS (4)
  - Diabetes insipidus [Not Recovered/Not Resolved]
  - IIIrd nerve paralysis [Recovering/Resolving]
  - Lymphoproliferative disorder [Recovered/Resolved]
  - Hypopituitarism [Not Recovered/Not Resolved]
